FAERS Safety Report 8306117-3 (Version None)
Quarter: 2012Q2

REPORT INFORMATION
  Report Type: 
  Country: None (occurrence: None)
  Receive Date: 20120423
  Receipt Date: 20120416
  Transmission Date: 20120825
  Serious: Yes (Other)
  Sender: FDA-Public Use
  Company Number: CA-B.I. PHARMACEUTICALS,INC./RIDGEFIELD-2012-EU-02119GD

PATIENT
  Age: 60 Year
  Sex: Female

DRUGS (3)
  1. LITHIUM CARBONATE [Concomitant]
     Indication: BIPOLAR I DISORDER
     Dosage: 600 MG
  2. QUETIAPINE [Concomitant]
     Indication: BIPOLAR I DISORDER
     Dosage: 50 MG
  3. PRAMIPEXOLE DIHYDROCHLORIDE [Suspect]
     Indication: BIPOLAR I DISORDER
     Dosage: 1.5 MG

REACTIONS (3)
  - TACHYPHYLAXIS [None]
  - DRUG INEFFECTIVE [None]
  - DEPRESSION [None]
